FAERS Safety Report 24292607 (Version 2)
Quarter: 2024Q4

REPORT INFORMATION
  Report Type: Spontaneous
  Country: IT (occurrence: IT)
  Receive Date: 20240906
  Receipt Date: 20241107
  Transmission Date: 20250115
  Serious: Yes (Life-Threatening, Hospitalization, Disabling, Other)
  Sender: ALEXION PHARMACEUTICALS
  Company Number: None

PATIENT
  Age: 60 Year
  Weight: 94 kg

DRUGS (24)
  1. DAPAGLIFLOZIN [Suspect]
     Active Substance: DAPAGLIFLOZIN
     Indication: Insulin-requiring type 2 diabetes mellitus
     Dosage: 10 MG DAILY
  2. DAPAGLIFLOZIN [Suspect]
     Active Substance: DAPAGLIFLOZIN
     Dosage: 10 MG DAILY
  3. DAPAGLIFLOZIN [Suspect]
     Active Substance: DAPAGLIFLOZIN
     Dosage: 10 MG DAILY
  4. DAPAGLIFLOZIN [Suspect]
     Active Substance: DAPAGLIFLOZIN
     Dosage: 10 MG DAILY
  5. ATORVASTATIN [Concomitant]
     Active Substance: ATORVASTATIN
  6. ATORVASTATIN [Concomitant]
     Active Substance: ATORVASTATIN
  7. DULOXETINE [Concomitant]
     Active Substance: DULOXETINE
  8. DULOXETINE [Concomitant]
     Active Substance: DULOXETINE
     Route: 065
  9. HUMALOG [Concomitant]
     Active Substance: INSULIN LISPRO
  10. HUMALOG [Concomitant]
     Active Substance: INSULIN LISPRO
     Route: 065
  11. ASPIRIN [Concomitant]
     Active Substance: ASPIRIN
  12. ASPIRIN [Concomitant]
     Active Substance: ASPIRIN
  13. ASPIRIN [Concomitant]
     Active Substance: ASPIRIN
  14. ASPIRIN [Concomitant]
     Active Substance: ASPIRIN
  15. OLMESARTAN [Concomitant]
     Active Substance: OLMESARTAN
  16. OLMESARTAN [Concomitant]
     Active Substance: OLMESARTAN
  17. OLMESARTAN [Concomitant]
     Active Substance: OLMESARTAN
  18. OLMESARTAN [Concomitant]
     Active Substance: OLMESARTAN
  19. TRESIBA [Concomitant]
     Active Substance: INSULIN DEGLUDEC
  20. TRESIBA [Concomitant]
     Active Substance: INSULIN DEGLUDEC
  21. TRESIBA [Concomitant]
     Active Substance: INSULIN DEGLUDEC
  22. TRESIBA [Concomitant]
     Active Substance: INSULIN DEGLUDEC
  23. METFORMIN HYDROCHLORIDE [Concomitant]
     Active Substance: METFORMIN HYDROCHLORIDE
  24. METFORMIN HYDROCHLORIDE [Concomitant]
     Active Substance: METFORMIN HYDROCHLORIDE
     Route: 065

REACTIONS (1)
  - Necrotising fasciitis [Not Recovered/Not Resolved]
